FAERS Safety Report 17556380 (Version 1)
Quarter: 2020Q1

REPORT INFORMATION
  Report Type: Spontaneous
  Country: US (occurrence: US)
  Receive Date: 20200317
  Receipt Date: 20200317
  Transmission Date: 20200409
  Serious: Yes (Hospitalization, Disabling)
  Sender: FDA-Public Use
  Company Number: None

PATIENT
  Age: 52 Year
  Sex: Female
  Weight: 69.75 kg

DRUGS (4)
  1. PROLASTIN-C LIQUID [Suspect]
     Active Substance: .ALPHA.1-PROTEINASE INHIBITOR HUMAN
     Indication: EMPHYSEMA
     Dosage: ?          QUANTITY:4 INJECTION(S);OTHER FREQUENCY:WEEKLY;?
     Route: 042
     Dates: start: 20191111, end: 20191111
  2. PROLASTIN-C LIQUID [Suspect]
     Active Substance: .ALPHA.1-PROTEINASE INHIBITOR HUMAN
     Indication: VASCULITIS
     Dosage: ?          QUANTITY:4 INJECTION(S);OTHER FREQUENCY:WEEKLY;?
     Route: 042
     Dates: start: 20191111, end: 20191111
  3. COLLAGEN [Concomitant]
     Active Substance: COLLAGEN
  4. AMLODIPINE [Concomitant]
     Active Substance: AMLODIPINE BESYLATE

REACTIONS (4)
  - Product storage error [None]
  - Pneumonia [None]
  - Suspected product contamination [None]
  - Infusion related reaction [None]

NARRATIVE: CASE EVENT DATE: 20191111
